FAERS Safety Report 11447164 (Version 1)
Quarter: 2015Q3

REPORT INFORMATION
  Report Type: Spontaneous
  Country: ES (occurrence: ES)
  Receive Date: 20150902
  Receipt Date: 20150902
  Transmission Date: 20151125
  Serious: Yes (Hospitalization)
  Sender: FDA-Public Use
  Company Number: ES-MEDA-2015080076

PATIENT
  Age: 78 Year
  Sex: Female

DRUGS (6)
  1. DILUTOL 10 MG [Suspect]
     Active Substance: TORSEMIDE
     Indication: HYPERTENSION
     Dosage: 2-0-0
     Route: 048
     Dates: start: 20140910, end: 20140915
  2. ENALAPRIL 20 MG [Suspect]
     Active Substance: ENALAPRIL
     Indication: HYPERTENSION
     Dosage: 1-0-1
     Route: 048
     Dates: start: 20140910, end: 20140915
  3. EXELON 9.5 MG [Concomitant]
     Indication: DEMENTIA ALZHEIMER^S TYPE
     Route: 062
     Dates: start: 20140804, end: 20140915
  4. ADIRO 100 MG [Concomitant]
     Active Substance: ASPIRIN
     Indication: PERIPHERAL ARTERIAL OCCLUSIVE DISEASE
     Route: 048
     Dates: start: 20140903
  5. ATORVASTATIN 10 MG [Concomitant]
     Active Substance: ATORVASTATIN
     Indication: DYSLIPIDAEMIA
     Route: 048
     Dates: start: 20140903
  6. MOVICOL 13.8 G [Concomitant]
     Indication: CONSTIPATION
     Route: 048
     Dates: start: 20150804

REACTIONS (3)
  - Confusional state [Recovered/Resolved]
  - Drug interaction [Recovered/Resolved]
  - Renal failure [Recovered/Resolved]

NARRATIVE: CASE EVENT DATE: 20140910
